FAERS Safety Report 21366504 (Version 2)
Quarter: 2022Q3

REPORT INFORMATION
  Report Type: Report from Study
  Country: US (occurrence: US)
  Receive Date: 20220923
  Receipt Date: 20220929
  Transmission Date: 20221027
  Serious: Yes (Other)
  Sender: FDA-Public Use
  Company Number: US-ABBVIE-4127763

PATIENT
  Age: 81 Year
  Sex: Male

DRUGS (13)
  1. IMBRUVICA [Suspect]
     Active Substance: IBRUTINIB
     Indication: Chronic lymphocytic leukaemia
     Route: 048
     Dates: end: 2022
  2. Coricidin HBP Oral Tablet 10-325-2 [Concomitant]
     Indication: Product used for unknown indication
  3. Ramipril Oral Capsule 2.5 MG [Concomitant]
     Indication: Product used for unknown indication
  4. Folic Acid Oral Tablet 1 MG [Concomitant]
     Indication: Product used for unknown indication
  5. Bayer Aspirin EC Low Dose Oral Tabl [Concomitant]
     Indication: Product used for unknown indication
  6. metFORMIN HCl Oral Tablet 500 MG [Concomitant]
     Indication: Product used for unknown indication
  7. Metoprolol Tartrate Oral Tablet 100 [Concomitant]
     Indication: Product used for unknown indication
  8. Levothyroxine Sodium Oral Tablet 50 [Concomitant]
     Indication: Product used for unknown indication
  9. Atorvastatin Calcium Oral Tablet 10 [Concomitant]
     Indication: Product used for unknown indication
     Route: 048
  10. Ferrous Sulfate Oral Tablet 325 (65 [Concomitant]
     Indication: Product used for unknown indication
  11. Isosorbide Mononitrate Oral Tablet [Concomitant]
     Indication: Product used for unknown indication
  12. Nitroglycerin ER Oral Capsule Exten [Concomitant]
     Indication: Product used for unknown indication
  13. OMEPRAZOLE [Concomitant]
     Active Substance: OMEPRAZOLE
     Indication: Product used for unknown indication

REACTIONS (1)
  - Stomach mass [Recovering/Resolving]

NARRATIVE: CASE EVENT DATE: 20220912
